FAERS Safety Report 5485372-1 (Version None)
Quarter: 2007Q4

REPORT INFORMATION
  Report Type: 
  Country: None (occurrence: None)
  Receive Date: 20071015
  Receipt Date: 20071008
  Transmission Date: 20080405
  Serious: Yes (Other)
  Sender: FDA-Public Use
  Company Number: GB-BRISTOL-MYERS SQUIBB COMPANY-13889811

PATIENT
  Age: 42 Year
  Sex: Female

DRUGS (5)
  1. CARMUSTINE [Suspect]
     Indication: T-CELL CHRONIC LYMPHOCYTIC LEUKAEMIA
  2. ETOPOSIDE [Suspect]
     Indication: T-CELL CHRONIC LYMPHOCYTIC LEUKAEMIA
  3. CYTARABINE [Suspect]
     Indication: T-CELL CHRONIC LYMPHOCYTIC LEUKAEMIA
  4. MELPHALAN [Suspect]
     Indication: T-CELL CHRONIC LYMPHOCYTIC LEUKAEMIA
  5. CAMPATH [Suspect]
     Indication: T-CELL CHRONIC LYMPHOCYTIC LEUKAEMIA

REACTIONS (1)
  - HERPES ZOSTER [None]
